FAERS Safety Report 17818009 (Version 1)
Quarter: 2020Q2

REPORT INFORMATION
  Report Type: Spontaneous
  Country: CO (occurrence: CO)
  Receive Date: 20200522
  Receipt Date: 20200522
  Transmission Date: 20200714
  Serious: Yes (Hospitalization)
  Sender: FDA-Public Use
  Company Number: CO-BAYER-2020-093612

PATIENT
  Age: 79 Year

DRUGS (1)
  1. ULTRAVIST [Suspect]
     Active Substance: IOPROMIDE
     Indication: COMPUTERISED TOMOGRAM
     Dosage: UNK UNK, ONCE
     Dates: start: 20200518, end: 20200518

REACTIONS (7)
  - Blood pressure increased [None]
  - Feeling cold [None]
  - Respiratory rate increased [None]
  - Chills [None]
  - Hypothermia [None]
  - Heart rate increased [None]
  - Oxygen saturation decreased [None]

NARRATIVE: CASE EVENT DATE: 20200518
